FAERS Safety Report 25993163 (Version 2)
Quarter: 2025Q4

REPORT INFORMATION
  Report Type: Report from Study
  Country: US (occurrence: US)
  Receive Date: 20251104
  Receipt Date: 20251114
  Transmission Date: 20260117
  Serious: No
  Sender: SANOFI AVENTIS
  Company Number: US-SA-2025SA324118

PATIENT
  Age: 60 Year
  Sex: Female
  Weight: 73.016 kg

DRUGS (1)
  1. DUPILUMAB [Suspect]
     Active Substance: DUPILUMAB
     Indication: Dermatitis atopic
     Dosage: 300 MG, QOW
     Route: 058

REACTIONS (3)
  - Visual impairment [Unknown]
  - Pruritus [Unknown]
  - Product dose omission issue [Unknown]
